FAERS Safety Report 7137778-2 (Version None)
Quarter: 2010Q4

REPORT INFORMATION
  Report Type: 
  Country: None (occurrence: None)
  Receive Date: 20101206
  Receipt Date: 20101204
  Transmission Date: 20110411
  Serious: Yes (Death)
  Sender: FDA-Public Use
  Company Number: PHHO2008TZ03393

PATIENT
  Sex: Female
  Weight: 5 kg

DRUGS (1)
  1. COARTEM [Suspect]
     Dosage: 5 SINGLE TABLETS
     Route: 048
     Dates: start: 20080227

REACTIONS (7)
  - DIARRHOEA [None]
  - DYSPNOEA [None]
  - GENERAL PHYSICAL HEALTH DETERIORATION [None]
  - PNEUMONIA [None]
  - PYREXIA [None]
  - RESPIRATORY DISTRESS [None]
  - VOMITING [None]
